FAERS Safety Report 12141934 (Version 2)
Quarter: 2016Q1

REPORT INFORMATION
  Report Type: Spontaneous
  Country: IL (occurrence: IL)
  Receive Date: 20160303
  Receipt Date: 20160310
  Transmission Date: 20160526
  Serious: Yes (Hospitalization, Other)
  Sender: FDA-Public Use
  Company Number: IL-PFIZER INC-2016077234

PATIENT
  Age: 73 Year
  Sex: Female

DRUGS (1)
  1. ELELYSO [Suspect]
     Active Substance: TALIGLUCERASE ALFA
     Indication: GAUCHER^S DISEASE TYPE I
     Dosage: 3000 UNIT/ INFUSION
     Route: 042
     Dates: start: 201212

REACTIONS (4)
  - Troponin increased [Unknown]
  - Dyspnoea [Unknown]
  - Chest discomfort [Unknown]
  - Coronary artery disease [Unknown]
